FAERS Safety Report 14251974 (Version 2)
Quarter: 2017Q4

REPORT INFORMATION
  Report Type: Spontaneous
  Country: US (occurrence: US)
  Receive Date: 20171205
  Receipt Date: 20171212
  Transmission Date: 20180321
  Serious: No
  Sender: FDA-Public Use
  Company Number: US-BIOMARINAP-US-2017-116258

PATIENT
  Sex: Male

DRUGS (1)
  1. KUVAN [Suspect]
     Active Substance: SAPROPTERIN DIHYDROCHLORIDE
     Indication: PHENYLKETONURIA
     Dosage: 1800 MG, QD
     Route: 065
     Dates: start: 201611

REACTIONS (2)
  - Malaise [Unknown]
  - Nasopharyngitis [Unknown]
